FAERS Safety Report 5160718-2 (Version None)
Quarter: 2006Q4

REPORT INFORMATION
  Report Type: 
  Country: None (occurrence: None)
  Receive Date: 20061121
  Receipt Date: 20061113
  Transmission Date: 20070319
  Serious: Yes (Death)
  Sender: FDA-Public Use
  Company Number: GXKR2006US07300

PATIENT
  Age: 40 Year
  Sex: Male

DRUGS (1)
  1. METFORMIN(NGX) (METFORMIN) TABLET [Suspect]
     Dosage: 130 70 TALBET,S ORAL
     Route: 048

REACTIONS (15)
  - APNOEA [None]
  - BALANCE DISORDER [None]
  - BLOOD GLUCOSE DECREASED [None]
  - CARDIO-RESPIRATORY ARREST [None]
  - COMPLETED SUICIDE [None]
  - DIALYSIS [None]
  - DISORIENTATION [None]
  - HYPERHIDROSIS [None]
  - HYPOTENSION [None]
  - INTENTIONAL OVERDOSE [None]
  - LACTIC ACIDOSIS [None]
  - MENTAL STATUS CHANGES [None]
  - SOMNOLENCE [None]
  - URINE OUTPUT DECREASED [None]
  - VOMITING [None]
